FAERS Safety Report 17909308 (Version 1)
Quarter: 2020Q2

REPORT INFORMATION
  Report Type: Spontaneous
  Country: US (occurrence: US)
  Receive Date: 20200617
  Receipt Date: 20200617
  Transmission Date: 20200714
  Serious: Yes (Other)
  Sender: FDA-Public Use
  Company Number: US-ASTRAZENECA-2020SE76996

PATIENT
  Age: 58 Year
  Sex: Female
  Weight: 108 kg

DRUGS (1)
  1. NEXIUM 24HR [Suspect]
     Active Substance: ESOMEPRAZOLE MAGNESIUM
     Indication: PROPHYLAXIS
     Route: 048
     Dates: start: 20200504, end: 20200511

REACTIONS (15)
  - Asthma [Unknown]
  - Deafness [Unknown]
  - Dermatitis [Unknown]
  - Abdominal pain [Unknown]
  - Rash [Recovered/Resolved]
  - Autoimmune disorder [Unknown]
  - Arthralgia [Unknown]
  - Back pain [Unknown]
  - Dry mouth [Unknown]
  - Mobility decreased [Unknown]
  - Photosensitivity reaction [Unknown]
  - Dry eye [Unknown]
  - Condition aggravated [Unknown]
  - Sinus disorder [Unknown]
  - Pruritus [Unknown]

NARRATIVE: CASE EVENT DATE: 2020
